FAERS Safety Report 9593539 (Version 1)
Quarter: 2013Q4

REPORT INFORMATION
  Report Type: Report from Study
  Country: US (occurrence: US)
  Receive Date: 20131004
  Receipt Date: 20131004
  Transmission Date: 20140711
  Serious: Yes (Hospitalization, Other)
  Sender: FDA-Public Use
  Company Number: US-ALEXION-A201202574

PATIENT
  Age: 36 Year
  Sex: Female

DRUGS (19)
  1. ECULIZUMAB [Suspect]
     Indication: PROPHYLAXIS AGAINST TRANSPLANT REJECTION
     Dosage: 1200 MG, SINGLE
     Route: 042
     Dates: start: 20120830, end: 20120830
  2. ECULIZUMAB [Suspect]
     Dosage: 900 MG, QW
     Route: 042
     Dates: start: 20120831, end: 20120927
  3. ECULIZUMAB [Suspect]
     Dosage: 1200 MG, Q2W
     Route: 042
     Dates: start: 20121003, end: 20121101
  4. PRILOSEC [Concomitant]
  5. SIMVASTATIN [Concomitant]
  6. AMLODIPINE [Concomitant]
  7. BIOTIN [Concomitant]
  8. TYLENOL [Concomitant]
  9. SENOKOT [Concomitant]
  10. VALCYTE [Concomitant]
  11. BACTRIM [Concomitant]
  12. PROCHLORPERAZINE [Concomitant]
  13. BENADRYL [Concomitant]
  14. COLACE [Concomitant]
  15. DILAUDID [Concomitant]
  16. CELLCEPT [Concomitant]
  17. PREDNISONE [Concomitant]
  18. TACROLIMUS [Concomitant]
  19. XYLOCAINE [Concomitant]

REACTIONS (1)
  - Post procedural haemorrhage [Recovered/Resolved]
